FAERS Safety Report 8050675-3 (Version None)
Quarter: 2012Q1

REPORT INFORMATION
  Report Type: 
  Country: None (occurrence: None)
  Receive Date: 20120117
  Receipt Date: 20120117
  Transmission Date: 20120608
  Serious: Yes (Other)
  Sender: FDA-Public Use
  Company Number: None

PATIENT
  Age: 53 Year
  Sex: Female
  Weight: 83.007 kg

DRUGS (1)
  1. URINARY PAIN RELIEF [Suspect]
     Indication: DYSURIA
     Dosage: 2 TABLETS LABELED 95 MG
     Route: 048
     Dates: start: 20120113, end: 20120113

REACTIONS (4)
  - VERTIGO [None]
  - NAUSEA [None]
  - DYSSTASIA [None]
  - VOMITING [None]
